FAERS Safety Report 10524459 (Version 1)
Quarter: 2014Q4

REPORT INFORMATION
  Report Type: Spontaneous
  Country: US (occurrence: None)
  Receive Date: 20141015
  Receipt Date: 20141015
  Transmission Date: 20150528
  Serious: Yes (Other)
  Sender: FDA-Public Use
  Company Number: ADR-2014-01885

PATIENT
  Age: 85 Year
  Sex: Female

DRUGS (2)
  1. COMPOUNDED BACLOFEN INTRATHECAL (700MCG/ML) [Suspect]
     Active Substance: BACLOFEN
     Indication: SPINAL PAIN
     Dosage: DAY
  2. COMPOUNDED MORPHINE (10MG/ML) [Suspect]
     Active Substance: MORPHINE
     Dosage: DAY

REACTIONS (3)
  - Dementia Alzheimer^s type [None]
  - Product contamination physical [None]
  - Device issue [None]
